FAERS Safety Report 12500480 (Version 2)
Quarter: 2016Q4

REPORT INFORMATION
  Report Type: Spontaneous
  Country: AU (occurrence: AU)
  Receive Date: 20160627
  Receipt Date: 20161103
  Transmission Date: 20170207
  Serious: Yes (Other)
  Sender: FDA-Public Use
  Company Number: AU-009507513-1602AUS013173

PATIENT
  Sex: Male

DRUGS (2)
  1. TEMOZOLOMIDE. [Suspect]
     Active Substance: TEMOZOLOMIDE
     Dosage: UNK
     Route: 048
     Dates: start: 201411
  2. TEMOZOLOMIDE. [Suspect]
     Active Substance: TEMOZOLOMIDE
     Indication: GLIOBLASTOMA
     Dosage: UNK, CYCLICAL
     Route: 048

REACTIONS (3)
  - Tumour pseudoprogression [Recovered/Resolved]
  - Drug ineffective [Unknown]
  - Glioblastoma [Recovering/Resolving]

NARRATIVE: CASE EVENT DATE: 201406
